FAERS Safety Report 6456398-6 (Version None)
Quarter: 2009Q4

REPORT INFORMATION
  Report Type: 
  Country: None (occurrence: None)
  Receive Date: 20091120
  Receipt Date: 20091106
  Transmission Date: 20100525
  Serious: Yes (Hospitalization)
  Sender: FDA-Public Use
  Company Number: 232736J09USA

PATIENT
  Age: 58 Year
  Sex: Female

DRUGS (1)
  1. REBIF [Suspect]
     Indication: MULTIPLE SCLEROSIS
     Dosage: 44 MCG, 3 IN 1 WEEKS, SUBCUTANEOUS
     Route: 058
     Dates: start: 20081114

REACTIONS (5)
  - CONTUSION [None]
  - OVARIAN DISORDER [None]
  - POSTOPERATIVE WOUND COMPLICATION [None]
  - SMEAR CERVIX ABNORMAL [None]
  - URINARY TRACT INFECTION [None]
